FAERS Safety Report 23272982 (Version 1)
Quarter: 2023Q4

REPORT INFORMATION
  Report Type: Report from Study
  Country: FR (occurrence: FR)
  Receive Date: 20231207
  Receipt Date: 20231207
  Transmission Date: 20240110
  Serious: Yes (Other)
  Sender: FDA-Public Use
  Company Number: FR-SERVIERJAP-S22002147AA

PATIENT

DRUGS (6)
  1. PEGASPARGASE [Suspect]
     Active Substance: PEGASPARGASE
     Indication: Acute lymphocytic leukaemia
     Dosage: 1725 IU, D8, D36, D64
     Route: 042
     Dates: start: 20201217, end: 20210223
  2. MERCAPTOPURINE [Suspect]
     Active Substance: MERCAPTOPURINE
     Indication: Acute lymphocytic leukaemia
     Dosage: 34 MG, D1 TO D21, D29 TO D49, D57 TO D77
     Route: 048
     Dates: start: 20201210
  3. VINCRISTINE [Suspect]
     Active Substance: VINCRISTINE
     Indication: Acute lymphocytic leukaemia
     Dosage: 1 MG, D1, D8, D29, D36, D57, D64
     Route: 065
     Dates: start: 20201210, end: 20210223
  4. DEXAMETHASONE [Suspect]
     Active Substance: DEXAMETHASONE
     Indication: Acute lymphocytic leukaemia
     Dosage: 4 MG, D1 TO D5, D29 TO D33, D57 TO D61
     Route: 048
     Dates: start: 20201210, end: 20210221
  5. METHOTREXATE [Suspect]
     Active Substance: METHOTREXATE
     Indication: Acute lymphocytic leukaemia
     Dosage: 17.5 MG, D8, D15, D22, D36,  D43, D50, D66, D71, AND D78
     Route: 048
     Dates: start: 20201217
  6. METHOTREXATE [Suspect]
     Active Substance: METHOTREXATE
     Dosage: 12 MG, D2, D30, D58
     Route: 037
     Dates: start: 20201211, end: 20210217

REACTIONS (2)
  - Lipase increased [Recovered/Resolved]
  - Mucosal inflammation [Recovered/Resolved]

NARRATIVE: CASE EVENT DATE: 20210225
